FAERS Safety Report 14202114 (Version 4)
Quarter: 2019Q3

REPORT INFORMATION
  Report Type: Report from Study
  Country: US (occurrence: US)
  Receive Date: 20171117
  Receipt Date: 20190916
  Transmission Date: 20191004
  Serious: Yes (Hospitalization)
  Sender: FDA-Public Use
  Company Number: US-CELGENEUS-USA-20170704104

PATIENT
  Age: 80 Year
  Sex: Male
  Weight: 79.2 kg

DRUGS (57)
  1. AG-221 [Suspect]
     Active Substance: ENASIDENIB
     Indication: ACUTE MYELOID LEUKAEMIA
     Dosage: 200 MILLIGRAM
     Route: 048
     Dates: start: 20170126, end: 20170711
  2. ASPIRIN. [Concomitant]
     Active Substance: ASPIRIN
     Indication: DYSARTHRIA
     Dosage: 81 MILLIGRAM
     Route: 048
     Dates: start: 20170203
  3. FOLIC ACID. [Concomitant]
     Active Substance: FOLIC ACID
     Indication: VITAMIN SUPPLEMENTATION
     Dosage: 1200 MICROGRAM
     Route: 048
     Dates: start: 20170407
  4. MULTIPLE VITAMINS [Concomitant]
     Active Substance: VITAMINS
     Indication: VITAMIN SUPPLEMENTATION
     Dosage: 1 TABLET
     Route: 048
     Dates: start: 20170118
  5. MULTIPLE VITAMINS [Concomitant]
     Active Substance: VITAMINS
     Dosage: 20 MILLIGRAM
     Route: 048
     Dates: start: 20170118
  6. SOLIFENACIN SUCCINATE. [Concomitant]
     Active Substance: SOLIFENACIN SUCCINATE
     Indication: MICTURITION URGENCY
     Dosage: 10 MILLIGRAM
     Route: 048
     Dates: start: 20170404
  7. COLCHICINE. [Concomitant]
     Active Substance: COLCHICINE
     Indication: JOINT SWELLING
     Dosage: .6 MILLIGRAM
     Route: 048
     Dates: start: 20170517
  8. MIRALAX [Concomitant]
     Active Substance: POLYETHYLENE GLYCOL 3350
     Dosage: 17
     Route: 065
     Dates: start: 20170804, end: 20170817
  9. DIAZEPAM. [Concomitant]
     Active Substance: DIAZEPAM
     Indication: PREMEDICATION
     Dosage: 5
     Route: 065
     Dates: start: 20170809, end: 20170809
  10. AG-221 [Suspect]
     Active Substance: ENASIDENIB
     Dosage: 100 MILLIGRAM
     Route: 048
     Dates: start: 20170724
  11. AMLODIPINE [Concomitant]
     Active Substance: AMLODIPINE BESYLATE
     Indication: HYPERTENSION
     Dosage: 10 MILLIGRAM
     Route: 048
     Dates: start: 20170118
  12. VITAMIN B12 [Concomitant]
     Active Substance: CYANOCOBALAMIN
     Indication: VITAMIN SUPPLEMENTATION
     Dosage: 500 MICROGRAM
     Route: 048
     Dates: start: 20170118
  13. CARNITINE [Concomitant]
     Active Substance: CARNITINE
     Indication: VITAMIN SUPPLEMENTATION
     Dosage: 250 MILLIGRAM
     Route: 048
     Dates: start: 20170118
  14. SELENIUM [Concomitant]
     Active Substance: SELENIUM
     Indication: SUPPLEMENTATION THERAPY
     Dosage: 600 MILLIGRAM
     Route: 048
     Dates: start: 20170118
  15. FLUCONAZOLE. [Concomitant]
     Active Substance: FLUCONAZOLE
     Dosage: 20 MILLIGRAM
     Route: 048
     Dates: start: 20170118
  16. MIRALAX [Concomitant]
     Active Substance: POLYETHYLENE GLYCOL 3350
     Indication: CONSTIPATION
     Route: 065
     Dates: start: 20170614
  17. DIPHENHYDRAMINE. [Concomitant]
     Active Substance: DIPHENHYDRAMINE
     Indication: PRODUCT USED FOR UNKNOWN INDICATION
     Dosage: 25
     Route: 065
     Dates: start: 20170811, end: 20170815
  18. HEPARIN FLUSH [Concomitant]
     Active Substance: HEPARIN SODIUM
     Indication: PRODUCT USED FOR UNKNOWN INDICATION
     Dosage: 5
     Route: 065
     Dates: start: 20170811, end: 20170816
  19. ASPIRIN. [Concomitant]
     Active Substance: ASPIRIN
     Indication: PROPHYLAXIS
     Dosage: 650
     Route: 048
     Dates: start: 20170202, end: 20170202
  20. METFORMIN [Concomitant]
     Active Substance: METFORMIN HYDROCHLORIDE
     Indication: DIABETES MELLITUS
     Dosage: 1000 MILLIGRAM
     Route: 048
     Dates: start: 20170118
  21. PYRIDOXINE HCL [Concomitant]
     Active Substance: PYRIDOXINE HYDROCHLORIDE
     Indication: VITAMIN SUPPLEMENTATION
     Dosage: 100 MILLIGRAM
     Route: 048
     Dates: start: 20170118
  22. MIRALAX [Concomitant]
     Active Substance: POLYETHYLENE GLYCOL 3350
     Dosage: 20 MILLIGRAM
     Route: 048
     Dates: start: 20170118
  23. CALCIUM CARBONATE. [Concomitant]
     Active Substance: CALCIUM CARBONATE
     Indication: VITAMIN SUPPLEMENTATION
     Route: 048
     Dates: start: 20170118
  24. LUTEIN [Concomitant]
     Active Substance: LUTEIN
     Indication: ANTIOXIDANT THERAPY
     Dosage: 20 MILLIGRAM
     Route: 048
     Dates: start: 20170118
  25. LUTEIN [Concomitant]
     Active Substance: LUTEIN
     Dosage: 20 MILLIGRAM
     Route: 048
     Dates: start: 20170118
  26. TURMERIC [Concomitant]
     Active Substance: HERBALS\TURMERIC
     Dosage: 20 MILLIGRAM
     Route: 048
     Dates: start: 20170118
  27. SELENIUM [Concomitant]
     Active Substance: SELENIUM
     Dosage: 20 MILLIGRAM
     Route: 048
     Dates: start: 20170118
  28. LIDODERM [Concomitant]
     Active Substance: LIDOCAINE
     Indication: BACK PAIN
     Route: 062
     Dates: start: 20170320
  29. ALLOPURINOL. [Concomitant]
     Active Substance: ALLOPURINOL
     Indication: HYPERURICAEMIA
     Dosage: 300
     Route: 065
     Dates: start: 20170215
  30. ENOXAPARIN [Concomitant]
     Active Substance: ENOXAPARIN
     Dosage: 40 MILLIGRAM
     Route: 065
     Dates: start: 20170809, end: 20170817
  31. LIDODERM [Concomitant]
     Active Substance: LIDOCAINE
     Route: 062
     Dates: start: 20170718
  32. RESVERATROL [Concomitant]
     Active Substance: DIETARY SUPPLEMENT\RESVERATROL
     Indication: SUPPLEMENTATION THERAPY
     Dosage: 100 MILLIGRAM
     Route: 048
     Dates: start: 20170118
  33. BARIUM SULFATE [Concomitant]
     Active Substance: BARIUM SULFATE
     Indication: COMPUTERISED TOMOGRAM
     Dosage: 450
     Route: 065
     Dates: start: 20170803, end: 20170803
  34. HYDROCORTISONE. [Concomitant]
     Active Substance: HYDROCORTISONE
     Indication: PRODUCT USED FOR UNKNOWN INDICATION
     Dosage: 100
     Route: 065
     Dates: start: 20170811, end: 20170814
  35. POTASSIUM CHLORIDE. [Concomitant]
     Active Substance: POTASSIUM CHLORIDE
     Indication: PROPHYLAXIS
     Dosage: 40
     Route: 065
     Dates: start: 20170814, end: 20170814
  36. ACYCLOVIR. [Concomitant]
     Active Substance: ACYCLOVIR
     Indication: INFECTION PROPHYLAXIS
     Dosage: 400 MILLIGRAM
     Route: 048
     Dates: start: 20170118
  37. PYRIDOXINE HCL [Concomitant]
     Active Substance: PYRIDOXINE HYDROCHLORIDE
     Dosage: 20 MILLIGRAM
     Route: 048
     Dates: start: 20170118
  38. ENOXAPARIN [Concomitant]
     Active Substance: ENOXAPARIN
     Indication: DEEP VEIN THROMBOSIS
     Dosage: 20 MILLIGRAM
     Route: 048
     Dates: start: 20170118
  39. ENOXAPARIN [Concomitant]
     Active Substance: ENOXAPARIN
     Dosage: 40 MILLIGRAM
     Route: 058
     Dates: start: 20170306
  40. LIDODERM [Concomitant]
     Active Substance: LIDOCAINE
     Dosage: 20 MILLIGRAM
     Route: 048
     Dates: start: 20170118
  41. BENZOCAINE-MENTHOL [Concomitant]
     Indication: OROPHARYNGEAL PAIN
     Dosage: 1
     Route: 065
     Dates: start: 20170810, end: 20170817
  42. DOCUSATE [Concomitant]
     Active Substance: DOCUSATE
     Indication: CONSTIPATION
     Dosage: 2
     Route: 065
     Dates: start: 20170803, end: 20170813
  43. BISACODYL. [Concomitant]
     Active Substance: BISACODYL
     Indication: CONSTIPATION
     Dosage: 20 MILLIGRAM
     Route: 054
  44. ALFUZOSIN [Concomitant]
     Active Substance: ALFUZOSIN
     Indication: HYPERTENSION
     Dosage: 10 MILLIGRAM
     Route: 048
     Dates: start: 20170118
  45. BIOTIN [Concomitant]
     Active Substance: BIOTIN
     Indication: SUPPLEMENTATION THERAPY
     Route: 048
     Dates: start: 20170118
  46. MULTIPLE VITAMINS [Concomitant]
     Active Substance: VITAMINS
     Dosage: 1
     Route: 065
     Dates: start: 20170803, end: 20170817
  47. GLUCOSAMINE CHONDROTIN [Concomitant]
     Active Substance: CHONDROITIN SULFATE (BOVINE)\GLUCOSAMINE SULFATE
     Indication: SUPPLEMENTATION THERAPY
     Route: 048
     Dates: start: 20170118
  48. GLUCOSAMINE CHONDROTIN [Concomitant]
     Active Substance: CHONDROITIN SULFATE (BOVINE)\GLUCOSAMINE SULFATE
     Dosage: 20 MILLIGRAM
     Route: 048
     Dates: start: 20170118
  49. TURMERIC [Concomitant]
     Active Substance: HERBALS\TURMERIC
     Indication: SUPPLEMENTATION THERAPY
     Dosage: 500 MILLIGRAM
     Route: 048
     Dates: start: 20170118
  50. FLUCONAZOLE. [Concomitant]
     Active Substance: FLUCONAZOLE
     Indication: INFECTION PROPHYLAXIS
     Dosage: 200 MILLIGRAM
     Route: 048
     Dates: start: 20170309
  51. PREMARIN [Concomitant]
     Active Substance: ESTROGENS, CONJUGATED
     Indication: URINARY TRACT INFECTION
     Dosage: 12.8571 GRAM
     Route: 061
     Dates: start: 20170404
  52. SOLIFENACIN SUCCINATE. [Concomitant]
     Active Substance: SOLIFENACIN SUCCINATE
     Dosage: 20 MILLIGRAM
     Route: 048
     Dates: start: 20170118
  53. IMMUNE GLOBULIN (IVIG) [Concomitant]
     Active Substance: HUMAN IMMUNOGLOBULIN G
     Indication: PRODUCT USED FOR UNKNOWN INDICATION
     Dosage: 40
     Route: 065
     Dates: start: 20170811, end: 20170814
  54. KETOTIFEN [Concomitant]
     Active Substance: KETOTIFEN
     Indication: GLAUCOMA
     Dosage: 1
     Route: 047
     Dates: start: 20170806, end: 20170817
  55. LATANOPROST. [Concomitant]
     Active Substance: LATANOPROST
     Indication: GLAUCOMA
     Dosage: 1
     Route: 065
     Dates: start: 20170806, end: 20170816
  56. PREMARIN [Concomitant]
     Active Substance: ESTROGENS, CONJUGATED
     Dosage: 20 MILLIGRAM
     Route: 048
     Dates: start: 20170118
  57. COLCHICINE. [Concomitant]
     Active Substance: COLCHICINE
     Dosage: 20 MILLIGRAM
     Route: 048
     Dates: start: 20170118

REACTIONS (2)
  - Lumbosacral radiculopathy [Recovered/Resolved]
  - Normal pressure hydrocephalus [Recovered/Resolved]

NARRATIVE: CASE EVENT DATE: 20170712
